FAERS Safety Report 9646250 (Version 1)
Quarter: 2013Q4

REPORT INFORMATION
  Report Type: Report from Study
  Country: DE (occurrence: DE)
  Receive Date: 20131025
  Receipt Date: 20131025
  Transmission Date: 20140711
  Serious: Yes (Other)
  Sender: FDA-Public Use
  Company Number: DE-B.I. PHARMACEUTICALS,INC./RIDGEFIELD-2013-BI-33669DE

PATIENT
  Sex: Male

DRUGS (4)
  1. CATAPRESAN [Suspect]
     Route: 048
     Dates: start: 20131020
  2. TARGIN [Suspect]
     Dosage: 20 ANZ
     Dates: start: 20131020
  3. IBUPROFEN [Suspect]
     Route: 048
     Dates: start: 20131020
  4. TILIDIN AL [Suspect]
     Route: 048
     Dates: start: 20131020

REACTIONS (3)
  - Suicide attempt [Unknown]
  - Agitation [Unknown]
  - Hypertension [Unknown]
